FAERS Safety Report 15483436 (Version 1)
Quarter: 2018Q4

REPORT INFORMATION
  Report Type: Spontaneous
  Country: US (occurrence: US)
  Receive Date: 20181010
  Receipt Date: 20181010
  Transmission Date: 20190205
  Serious: Yes (Other)
  Sender: FDA-Public Use
  Company Number: US-AMGEN-USASP2018137013

PATIENT
  Age: 84 Year
  Sex: Female
  Weight: 48.53 kg

DRUGS (1)
  1. PROLIA [Suspect]
     Active Substance: DENOSUMAB
     Indication: OSTEOPOROSIS
     Dosage: 60 MG, Q6MO
     Route: 065
     Dates: start: 2013

REACTIONS (9)
  - Blood cholesterol increased [Recovered/Resolved]
  - Pain [Unknown]
  - Asthenia [Unknown]
  - Sjogren^s syndrome [Unknown]
  - Mastectomy [Unknown]
  - Bone pain [Unknown]
  - Visual impairment [Unknown]
  - Histoplasmosis [Unknown]
  - Pain in extremity [Recovered/Resolved]
